FAERS Safety Report 6875495-4 (Version None)
Quarter: 2010Q3

REPORT INFORMATION
  Report Type: 
  Country: None (occurrence: None)
  Receive Date: 20100727
  Receipt Date: 20100716
  Transmission Date: 20110219
  Serious: Yes (Other)
  Sender: FDA-Public Use
  Company Number: US-JNJFOC-20100705314

PATIENT
  Age: 8 Month
  Sex: Female
  Weight: 7.71 kg

DRUGS (2)
  1. CONCENTRATED TYLENOL INFANT DROPS [Suspect]
     Route: 048
  2. CONCENTRATED TYLENOL INFANT DROPS [Suspect]
     Indication: TEETHING
     Route: 048

REACTIONS (3)
  - HYPERSENSITIVITY [None]
  - PRODUCT ODOUR ABNORMAL [None]
  - VOMITING [None]
